FAERS Safety Report 7066497-6 (Version None)
Quarter: 2010Q4

REPORT INFORMATION
  Report Type: 
  Country: None (occurrence: None)
  Receive Date: 20101027
  Receipt Date: 20100810
  Transmission Date: 20110411
  Serious: No
  Sender: FDA-Public Use
  Company Number: US-WYE-H15213810

PATIENT
  Sex: Female
  Weight: 54.48 kg

DRUGS (4)
  1. PREMPRO [Suspect]
     Indication: MENOPAUSAL SYMPTOMS
     Route: 048
     Dates: start: 20000101, end: 20080101
  2. PREMPRO [Suspect]
     Route: 048
     Dates: start: 20080101, end: 20100509
  3. PREMPRO [Suspect]
     Dosage: DOSE UNKNOWN/TAPERED; TAKEN EVERY OTHER DAY
     Route: 048
     Dates: start: 20100510
  4. VITAMINS [Concomitant]

REACTIONS (3)
  - AGGRESSION [None]
  - ANXIETY [None]
  - BREAST CALCIFICATIONS [None]
